FAERS Safety Report 8468468-1 (Version None)
Quarter: 2012Q2

REPORT INFORMATION
  Report Type: 
  Country: None (occurrence: None)
  Receive Date: 20120626
  Receipt Date: 20120614
  Transmission Date: 20120825
  Serious: Yes (Hospitalization)
  Sender: FDA-Public Use
  Company Number: IT-BAYER-2012-059221

PATIENT
  Age: 57 Year
  Sex: Female

DRUGS (6)
  1. ASPIRIN [Suspect]
     Indication: THROMBOSIS PROPHYLAXIS
     Dosage: 100 MG, QD
     Route: 048
     Dates: start: 20091001, end: 20120602
  2. ANAGRELIDE HYDROCHLORIDE [Suspect]
     Indication: THROMBOCYTOSIS
     Dosage: DAILY DOSE 1.5 MG
     Route: 048
     Dates: start: 20100204, end: 20120602
  3. LANSOPRAZOLE [Concomitant]
     Dosage: DAILY DOSE 30 MG
     Route: 048
  4. SEACOR [Concomitant]
     Dosage: UNK
     Route: 048
  5. OLMESARTAN MEDOXOMIL [Concomitant]
     Dosage: DAILY DOSE 40 MG
     Route: 048
  6. ALLOPURINOL [Suspect]
     Indication: HYPERURICAEMIA
     Dosage: DAILY DOSE 300 MG
     Route: 048
     Dates: start: 20091001, end: 20120602

REACTIONS (1)
  - TOXIC EPIDERMAL NECROLYSIS [None]
